FAERS Safety Report 17377474 (Version 4)
Quarter: 2020Q1

REPORT INFORMATION
  Report Type: Spontaneous
  Country: BE (occurrence: BE)
  Receive Date: 20200206
  Receipt Date: 20200330
  Transmission Date: 20200409
  Serious: Yes (Hospitalization)
  Sender: FDA-Public Use
  Company Number: BE-MYLANLABS-2020M1013112

PATIENT
  Age: 88 Year
  Sex: Male
  Weight: 57.4 kg

DRUGS (19)
  1. NEORAL-SANDIMMUN [Suspect]
     Active Substance: CYCLOSPORINE
     Indication: RENAL TRANSPLANT
     Dosage: 75 MILLIGRAM
     Route: 048
     Dates: start: 20190916, end: 20191029
  2. D-CURE [Concomitant]
     Active Substance: CHOLECALCIFEROL
     Dosage: UNK
  3. ATORVASTATIN [Suspect]
     Active Substance: ATORVASTATIN
     Indication: HYPERCHOLESTEROLAEMIA
     Dosage: 40 MILLIGRAM, QD
     Route: 048
     Dates: start: 20190916, end: 20191029
  4. PANTOPRAZOL                        /01263201/ [Concomitant]
     Active Substance: PANTOPRAZOLE
     Dosage: UNK
  5. ASPIRINE [Concomitant]
     Active Substance: ASPIRIN
     Indication: CORONARY ANGIOPLASTY
     Dosage: UNK
     Dates: start: 20190916
  6. BISOPROLOL [Concomitant]
     Active Substance: BISOPROLOL
     Dosage: UNK
  7. PREDNISOLONE. [Concomitant]
     Active Substance: PREDNISOLONE
     Dosage: UNK
  8. FUROSEMIDE. [Concomitant]
     Active Substance: FUROSEMIDE
     Dosage: UNK
  9. RANOMAX [Concomitant]
     Dosage: UNK
  10. LIPITOR [Interacting]
     Active Substance: ATORVASTATIN CALCIUM
     Indication: CORONARY ANGIOPLASTY
     Dosage: UNK
     Dates: start: 20190916
  11. LAXIDO [Concomitant]
     Active Substance: POLYETHYLENE GLYCOL 3350\POTASSIUM CHLORIDE\SODIUM BICARBONATE\SODIUM CHLORIDE
     Dosage: UNK
  12. PARACETAMOL [Concomitant]
     Active Substance: ACETAMINOPHEN
     Dosage: 1 DOSAGE FORM, PRN
  13. LYSOMUCIL [Concomitant]
     Active Substance: ACETYLCYSTEINE
     Dosage: UNK
  14. AMLODIPINE [Concomitant]
     Active Substance: AMLODIPINE BESYLATE
     Dosage: UNK
  15. ATROVENT [Concomitant]
     Active Substance: IPRATROPIUM BROMIDE
     Dosage: UNK
  16. TRADONAL [Concomitant]
     Active Substance: TRAMADOL HYDROCHLORIDE
     Dosage: 1 DOSAGE FORM, PRN
  17. CLOPIDOGREL [Concomitant]
     Active Substance: CLOPIDOGREL BISULFATE
     Indication: CORONARY ANGIOPLASTY
     Dosage: UNK
     Dates: start: 20190916
  18. CALCIUM CARBONATE. [Concomitant]
     Active Substance: CALCIUM CARBONATE
     Dosage: UNK
  19. PASSIFLORA INCARNATA [Concomitant]
     Active Substance: HERBALS\HOMEOPATHICS\PASSIFLORA INCARNATA FLOWERING TOP
     Dosage: DRUG NAME IS SEDISTRESS.

REACTIONS (8)
  - Hepatitis C [Recovering/Resolving]
  - Cell death [Recovering/Resolving]
  - Blood creatinine abnormal [Recovering/Resolving]
  - Cholestasis [Recovering/Resolving]
  - Drug interaction [Recovering/Resolving]
  - Bilirubin conjugated abnormal [Recovering/Resolving]
  - Jaundice [Recovering/Resolving]
  - Blood creatine phosphokinase increased [Recovering/Resolving]

NARRATIVE: CASE EVENT DATE: 20191015
